FAERS Safety Report 24019920 (Version 1)
Quarter: 2024Q2

REPORT INFORMATION
  Report Type: Spontaneous
  Country: US (occurrence: US)
  Receive Date: 20240627
  Receipt Date: 20240627
  Transmission Date: 20240716
  Serious: No
  Sender: FDA-Public Use
  Company Number: US-SA-SAC20240624000534

PATIENT
  Age: 64 Year
  Sex: Male
  Weight: 77 kg

DRUGS (1)
  1. DUPIXENT [Suspect]
     Active Substance: DUPILUMAB
     Indication: Chronic rhinosinusitis with nasal polyps
     Dosage: 300 MG, QOW
     Route: 058
     Dates: start: 202111

REACTIONS (7)
  - Respiratory tract infection [Unknown]
  - Nasopharyngitis [Unknown]
  - Cough [Unknown]
  - Anosmia [Unknown]
  - Ear discomfort [Unknown]
  - Injection site pain [Unknown]
  - Drainage [Unknown]

NARRATIVE: CASE EVENT DATE: 20240501
